FAERS Safety Report 12943030 (Version 2)
Quarter: 2016Q4

REPORT INFORMATION
  Report Type: Report from Study
  Country: None (occurrence: JP)
  Receive Date: 20161115
  Receipt Date: 20161220
  Transmission Date: 20170207
  Serious: Yes (Death, Other)
  Sender: FDA-Public Use
  Company Number: JP-SIGMA-TAU US-2016STPI000625

PATIENT
  Age: 67 Year
  Sex: Female

DRUGS (15)
  1. CALFINA [Concomitant]
     Active Substance: ALFACALCIDOL
  2. REGPARA [Concomitant]
     Active Substance: CINACALCET HYDROCHLORIDE
  3. DOXAZOSIN [Concomitant]
     Active Substance: DOXAZOSIN\DOXAZOSIN MESYLATE
  4. KAYEXALATE [Concomitant]
     Active Substance: SODIUM POLYSTYRENE SULFONATE
  5. CARNITOR [Suspect]
     Active Substance: LEVOCARNITINE
     Indication: CARNITINE DEFICIENCY
     Dosage: 1000 MG, TIW
     Route: 010
     Dates: start: 20150224, end: 20150930
  6. ZETIA [Concomitant]
     Active Substance: EZETIMIBE
  7. NIFEDIPINE. [Concomitant]
     Active Substance: NIFEDIPINE
  8. FOSRENOL [Concomitant]
     Active Substance: LANTHANUM CARBONATE
  9. SENNOSIDE                          /00571901/ [Concomitant]
     Active Substance: SENNOSIDES A AND B
  10. CARVEDILOL. [Concomitant]
     Active Substance: CARVEDILOL
  11. OLMETEC [Concomitant]
     Active Substance: OLMESARTAN MEDOXOMIL
  12. AMLODIPINE [Concomitant]
     Active Substance: AMLODIPINE BESYLATE
  13. ZOLPIDEM [Concomitant]
     Active Substance: ZOLPIDEM\ZOLPIDEM TARTRATE
  14. TRAZENTA [Concomitant]
     Active Substance: LINAGLIPTIN
  15. LANSOPRAZOLE. [Concomitant]
     Active Substance: LANSOPRAZOLE

REACTIONS (3)
  - Conjunctival laceration [Not Recovered/Not Resolved]
  - Peripheral arterial occlusive disease [Unknown]
  - Cardiac arrest [Fatal]

NARRATIVE: CASE EVENT DATE: 20150416
